FAERS Safety Report 9820355 (Version 1)
Quarter: 2013Q4

REPORT INFORMATION
  Report Type: Spontaneous
  Country: US (occurrence: None)
  Receive Date: 20131028
  Receipt Date: 20131028
  Transmission Date: 20140711
  Serious: Yes (Other)
  Sender: FDA-Public Use
  Company Number: SYM-2013-08619

PATIENT
  Age: 41 Year
  Sex: Male

DRUGS (3)
  1. WELLBUTRIN SR [Suspect]
     Indication: PRODUCT USED FOR UNKNOWN INDICATION
     Dates: start: 20100726, end: 20130802
  2. ADVAIR (SERETIDE) ( FLUTICASONE PROPIONATE, SALMETEROL XINAFOATE) [Concomitant]
  3. VERAMYST (FLUTICASONE FUROATE) (FLUTICASONE FUROATE) [Concomitant]

REACTIONS (1)
  - Convulsion [None]
